FAERS Safety Report 9257866 (Version 1)
Quarter: 2013Q1

REPORT INFORMATION
  Report Type: Spontaneous
  Country: US (occurrence: None)
  Receive Date: 20121212
  Receipt Date: 20121212
  Transmission Date: 20140127
  Serious: No
  Sender: FDA-Public Use
  Company Number: 1207USA013033

PATIENT
  Age: 58 Year
  Sex: Female

DRUGS (3)
  1. PEGINTRON [Suspect]
     Indication: HEPATITIS C
     Dosage: UNK, SUBCUTANEOUS
     Route: 058
     Dates: start: 20120716
  2. REBETOL [Suspect]
     Indication: HEPATITIS C
     Dosage: UNK, ORAL
     Route: 048
     Dates: start: 20120716
  3. VICTRELIS [Suspect]
     Indication: HEPATITIS C
     Dosage: UNK, ORAL
     Dates: start: 20120820

REACTIONS (6)
  - Injection site erythema [None]
  - Epistaxis [None]
  - Nasal dryness [None]
  - Malaise [None]
  - Dizziness [None]
  - Decreased appetite [None]
